FAERS Safety Report 15330780 (Version 1)
Quarter: 2018Q3

REPORT INFORMATION
  Report Type: Spontaneous
  Country: FR (occurrence: FR)
  Receive Date: 20180829
  Receipt Date: 20180829
  Transmission Date: 20181010
  Serious: Yes (Hospitalization)
  Sender: FDA-Public Use
  Company Number: FR-PFIZER INC-2018341388

PATIENT
  Age: 33 Year
  Sex: Female

DRUGS (3)
  1. OVITRELLE [Suspect]
     Active Substance: CHORIOGONADOTROPIN ALFA
     Indication: OVULATION INDUCTION
     Dosage: 0.5 ML, UNK
     Route: 058
     Dates: start: 20160403
  2. MENOPUR [Suspect]
     Active Substance: FOLLITROPIN\LUTEINIZING HORMONE
     Indication: CONTROLLED OVARIAN STIMULATION
     Dosage: 150 IU, 1X/DAY
     Route: 058
     Dates: start: 20160324, end: 20160402
  3. SYNAREL [Suspect]
     Active Substance: NAFARELIN ACETATE
     Indication: CONTROLLED OVARIAN STIMULATION
     Dosage: 2 DF, 1X/DAY
     Route: 045
     Dates: start: 20160324, end: 20160404

REACTIONS (3)
  - Effusion [Recovered/Resolved]
  - Ascites [Recovered/Resolved]
  - Ovarian hyperstimulation syndrome [Recovered/Resolved]

NARRATIVE: CASE EVENT DATE: 20160429
